FAERS Safety Report 9786323 (Version 4)
Quarter: 2014Q1

REPORT INFORMATION
  Report Type: Spontaneous
  Country: IT (occurrence: None)
  Receive Date: 20131224
  Receipt Date: 20140218
  Transmission Date: 20141002
  Serious: Yes (Other)
  Sender: FDA-Public Use
  Company Number: AUR-APL-2013-10694

PATIENT
  Age: 54 Year
  Sex: Male
  Weight: 95 kg

DRUGS (5)
  1. FINASTERIDE [Suspect]
     Indication: BENIGN PROSTATIC HYPERPLASIA
     Dosage: (5 MG, 1 D)
     Route: 048
     Dates: start: 20131116, end: 20131119
  2. TACHIDOL [Suspect]
     Indication: BACK PAIN
     Route: 048
     Dates: start: 20131115, end: 20131118
  3. UROREC [Suspect]
     Indication: BENIGN PROSTATIC HYPERPLASIA
     Dosage: 8 MG, 1 D
     Route: 048
     Dates: start: 20131116, end: 20131119
  4. MODITEN (FLUPHENAZINE HYDROCHLORIDE) [Concomitant]
  5. EN (DELORAZEPAM) [Concomitant]

REACTIONS (4)
  - Fluid retention [None]
  - Renal pain [None]
  - Bladder dilatation [None]
  - Back pain [None]
